FAERS Safety Report 9880638 (Version 2)
Quarter: 2014Q2

REPORT INFORMATION
  Report Type: Spontaneous
  Country: US (occurrence: US)
  Receive Date: 20140207
  Receipt Date: 20140421
  Transmission Date: 20141212
  Serious: Yes (Hospitalization)
  Sender: FDA-Public Use
  Company Number: US-BAYER-2014-018931

PATIENT
  Age: 20 Year
  Sex: Female
  Weight: 90.7 kg

DRUGS (15)
  1. YAZ [Suspect]
     Dosage: UNK
     Dates: start: 200802, end: 2013
  2. YAZ [Suspect]
     Dosage: UNK
     Dates: start: 201110, end: 201307
  3. YASMIN [Suspect]
     Dosage: UNK
     Dates: start: 2008, end: 2013
  4. LORATADIN [Concomitant]
     Indication: MULTIPLE ALLERGIES
     Dosage: UNK
     Route: 048
     Dates: start: 2004
  5. LORATADIN [Concomitant]
     Indication: MULTIPLE ALLERGIES
     Dosage: 10 MG, UNK
     Route: 048
     Dates: start: 20130504, end: 20130807
  6. LORATADIN [Concomitant]
     Indication: MULTIPLE ALLERGIES
     Dosage: 10 MG, UNK
     Route: 048
     Dates: start: 20130808
  7. CLARITIN [Concomitant]
     Dosage: UNK
     Route: 048
     Dates: start: 20130709
  8. AMOXICILLIN [Concomitant]
     Dosage: 500 MG, UNK
     Route: 048
     Dates: start: 20130723
  9. HYDROCODONE W/ACETAMINOPHEN [Concomitant]
     Dosage: 5-500MG
     Route: 048
     Dates: start: 20130723, end: 20130726
  10. CEPHALEXIN [Concomitant]
     Dosage: 500 MG, UNK
     Route: 048
     Dates: start: 20130807
  11. KEFLEX [Concomitant]
     Dosage: 500 MG, UNK
     Route: 048
     Dates: start: 20130808
  12. ALTEPLASE [Concomitant]
  13. RIVAROXABAN [Concomitant]
  14. METOPROLOL [Concomitant]
  15. ORTHO-TRI-CYCLEN LO [Concomitant]

REACTIONS (9)
  - Pulmonary embolism [None]
  - Deep vein thrombosis [Recovering/Resolving]
  - Pelvic venous thrombosis [Recovering/Resolving]
  - Emotional distress [None]
  - General physical health deterioration [Recovering/Resolving]
  - Injury [None]
  - Pain [Recovering/Resolving]
  - Anxiety [None]
  - Anhedonia [None]
